FAERS Safety Report 13994207 (Version 1)
Quarter: 2017Q3

REPORT INFORMATION
  Report Type: Spontaneous
  Country: US (occurrence: US)
  Receive Date: 20170920
  Receipt Date: 20170920
  Transmission Date: 20171128
  Serious: Yes (Other)
  Sender: FDA-Public Use
  Company Number: None

PATIENT
  Age: 56 Year
  Sex: Female
  Weight: 91.9 kg

DRUGS (7)
  1. LISINOPRIL. [Concomitant]
     Active Substance: LISINOPRIL
  2. NERATINIB [Suspect]
     Active Substance: NERATINIB
     Indication: BREAST CANCER METASTATIC
     Route: 048
     Dates: start: 20170902, end: 20170915
  3. CHOLECALCIFEROL [Concomitant]
     Active Substance: CHOLECALCIFEROL
  4. OMPERAZOLE [Concomitant]
     Active Substance: OMEPRAZOLE
  5. ENLAFAXINE [Concomitant]
  6. LOPERAMIDE [Concomitant]
     Active Substance: LOPERAMIDE
  7. METOPROLOL SUCCINATE. [Concomitant]
     Active Substance: METOPROLOL SUCCINATE

REACTIONS (2)
  - Ejection fraction decreased [None]
  - Cardiac failure congestive [None]

NARRATIVE: CASE EVENT DATE: 20170915
